FAERS Safety Report 24346626 (Version 1)
Quarter: 2024Q3

REPORT INFORMATION
  Report Type: Spontaneous
  Country: MM (occurrence: MM)
  Receive Date: 20240921
  Receipt Date: 20240921
  Transmission Date: 20241017
  Serious: Yes (Death)
  Sender: ROCHE
  Company Number: MM-ROCHE-10000082740

PATIENT
  Age: 54 Year
  Sex: Male

DRUGS (1)
  1. AVASTIN [Suspect]
     Active Substance: BEVACIZUMAB
     Indication: Oesophageal cancer metastatic
     Route: 042
     Dates: start: 20240219

REACTIONS (1)
  - Death [Fatal]

NARRATIVE: CASE EVENT DATE: 20240414
